FAERS Safety Report 12637517 (Version 1)
Quarter: 2016Q3

REPORT INFORMATION
  Report Type: Spontaneous
  Country: US (occurrence: US)
  Receive Date: 20160809
  Receipt Date: 20160809
  Transmission Date: 20161109
  Serious: Yes (Other)
  Sender: FDA-Public Use
  Company Number: US-JNJCP-30000348523

PATIENT
  Age: 57 Year
  Sex: Female
  Weight: 101 kg

DRUGS (2)
  1. NEUTROGENA PURE AND FREE BABY SUNSCREEN BROAD SPECTRUM SPF60 PLUS PURESCREEN [Suspect]
     Active Substance: TITANIUM DIOXIDE\ZINC OXIDE
     Indication: PROPHYLAXIS
     Dosage: ONCE
     Route: 061
     Dates: start: 20160724, end: 20160724
  2. NEURONTIN [Concomitant]
     Active Substance: GABAPENTIN
     Dosage: THREE PILLS A DAY SINCE TWELVE YEARS

REACTIONS (4)
  - Application site rash [Not Recovered/Not Resolved]
  - Application site pruritus [Not Recovered/Not Resolved]
  - Application site burn [Not Recovered/Not Resolved]
  - Application site dryness [Not Recovered/Not Resolved]

NARRATIVE: CASE EVENT DATE: 20160724
